FAERS Safety Report 16107553 (Version 1)
Quarter: 2019Q1

REPORT INFORMATION
  Report Type: Spontaneous
  Country: FR (occurrence: FR)
  Receive Date: 20190322
  Receipt Date: 20190322
  Transmission Date: 20190418
  Serious: Yes (Other)
  Sender: FDA-Public Use
  Company Number: FR-ASTRAZENECA-2019SE43700

PATIENT
  Sex: Male

DRUGS (2)
  1. IMFINZI [Suspect]
     Active Substance: DURVALUMAB
     Route: 042
  2. IMFINZI [Suspect]
     Active Substance: DURVALUMAB
     Route: 042

REACTIONS (2)
  - Neuralgia [Unknown]
  - Neuropathy peripheral [Unknown]
